FAERS Safety Report 4801228-9 (Version None)
Quarter: 2005Q4

REPORT INFORMATION
  Report Type: 
  Country: None (occurrence: None)
  Receive Date: 20051011
  Receipt Date: 20050902
  Transmission Date: 20060501
  Serious: Yes (Other)
  Sender: FDA-Public Use
  Company Number: GBS050918498

PATIENT
  Age: 36 Year
  Sex: Male

DRUGS (4)
  1. SOMATROPIN [Suspect]
  2. ANABOLIC STEROIDS [Concomitant]
  3. EPHEDRINE [Concomitant]
  4. LEVOTHYROXINE SODIUM [Concomitant]

REACTIONS (5)
  - CARDIAC DISORDER [None]
  - CARDIOMYOPATHY [None]
  - DYSPNOEA EXERTIONAL [None]
  - EJECTION FRACTION DECREASED [None]
  - VENTRICULAR HYPERTROPHY [None]
